FAERS Safety Report 5748648-6 (Version None)
Quarter: 2008Q2

REPORT INFORMATION
  Report Type: 
  Country: None (occurrence: None)
  Receive Date: 20080521
  Receipt Date: 20080516
  Transmission Date: 20081010
  Serious: Yes (Hospitalization)
  Sender: FDA-Public Use
  Company Number: A0726000A

PATIENT
  Sex: Male

DRUGS (1)
  1. ASPIRIN + CAFFEINE + PARACETAMOL POWDER (ACETMINOPHEN + ASPIRIN +) [Suspect]
     Indication: DRUG USE FOR UNKNOWN INDICATION
     Dosage: 1 SEE TEXT, THREE TIMES PER DAY / ORAL
     Route: 048

REACTIONS (2)
  - CORONARY ARTERY OCCLUSION [None]
  - MYOCARDIAL INFARCTION [None]
